FAERS Safety Report 21699340 (Version 2)
Quarter: 2023Q1

REPORT INFORMATION
  Report Type: Report from Study
  Country: US (occurrence: US)
  Receive Date: 20221208
  Receipt Date: 20230202
  Transmission Date: 20230418
  Serious: No
  Sender: FDA-Public Use
  Company Number: US-ABBVIE-4177684

PATIENT
  Sex: Female

DRUGS (4)
  1. HUMIRA [Suspect]
     Active Substance: ADALIMUMAB
     Indication: Uveitis
     Dosage: STRENGTH 40 MG?CITRATE-FREE
     Route: 058
     Dates: start: 20211012
  2. HUMIRA [Suspect]
     Active Substance: ADALIMUMAB
     Dosage: STRENGTH 40 MG?CITRATE-FREE
     Route: 058
  3. MELOXICAM [Concomitant]
     Active Substance: MELOXICAM
     Indication: Arthropathy
     Route: 065
  4. MODERNA COVID-19 VACCINE [Concomitant]
     Active Substance: ELASOMERAN
     Indication: COVID-19 immunisation
     Dosage: FREQUENCY: ONE TIME ONCE
     Route: 030

REACTIONS (7)
  - Ocular discomfort [Not Recovered/Not Resolved]
  - Pain in extremity [Unknown]
  - Ocular hyperaemia [Not Recovered/Not Resolved]
  - Arthritis [Unknown]
  - Peripheral swelling [Unknown]
  - Therapeutic response shortened [Not Recovered/Not Resolved]
  - Diabetes mellitus [Unknown]
